FAERS Safety Report 6278508-6 (Version None)
Quarter: 2009Q3

REPORT INFORMATION
  Report Type: 
  Country: None (occurrence: None)
  Receive Date: 20090721
  Receipt Date: 20090708
  Transmission Date: 20100115
  Serious: Yes (Hospitalization)
  Sender: FDA-Public Use
  Company Number: 237215J08USA

PATIENT
  Age: 45 Year
  Sex: Female
  Weight: 98 kg

DRUGS (5)
  1. REBIF [Suspect]
     Indication: MULTIPLE SCLEROSIS
     Dosage: 44 MCG, 3 IN 1 WEEKS, SUBCUTANEOUS
     Route: 058
     Dates: start: 20080103, end: 20080101
  2. BACLOFEN [Concomitant]
  3. ALEVE [Concomitant]
  4. OSCAL (CALCIUM CARBONATE) [Concomitant]
  5. ONE-A-DAY WOMENS (ONE A-DAY) [Concomitant]

REACTIONS (4)
  - BLOOD PRESSURE INCREASED [None]
  - GRAND MAL CONVULSION [None]
  - MEMORY IMPAIRMENT [None]
  - TACHYCARDIA [None]
